FAERS Safety Report 8477703-5 (Version None)
Quarter: 2012Q2

REPORT INFORMATION
  Report Type: 
  Country: None (occurrence: None)
  Receive Date: 20120326
  Receipt Date: 20120326
  Transmission Date: 20120825
  Serious: Yes (Hospitalization)
  Sender: FDA-Public Use
  Company Number: None

PATIENT
  Age: 69 Year
  Sex: Male
  Weight: 69.5 kg

DRUGS (1)
  1. FOSFOMYCIN [Suspect]
     Indication: URINARY TRACT INFECTION
     Dosage: 3 GM ONCE PO
     Route: 048
     Dates: start: 20111011, end: 20111025

REACTIONS (4)
  - VOMITING [None]
  - RENAL FAILURE ACUTE [None]
  - INCORRECT DOSE ADMINISTERED [None]
  - NAUSEA [None]
